FAERS Safety Report 16918987 (Version 2)
Quarter: 2020Q1

REPORT INFORMATION
  Report Type: Spontaneous
  Country: SE (occurrence: SE)
  Receive Date: 20191015
  Receipt Date: 20200102
  Transmission Date: 20200409
  Serious: Yes (Disabling)
  Sender: FDA-Public Use
  Company Number: SE-TEVA-2019-SE-1120853

PATIENT
  Age: 76 Year
  Sex: Male

DRUGS (17)
  1. ALIMTA [Suspect]
     Active Substance: PEMETREXED DISODIUM
     Route: 042
     Dates: start: 20190724, end: 20190724
  2. ZOPICLONE [Concomitant]
     Active Substance: ZOPICLONE
     Dosage: 1 TABL IF NEEDED FOR THE NIGHT, 7.5 MG
     Dates: start: 20170413
  3. MOLLIPECT 0,5 MG/ML + 1 MG/ML ORAL L?SNING [Concomitant]
     Dosage: VID BEHOV, H?GST 4 GGR/DAG
     Dates: start: 20171030
  4. IMOVANE [Concomitant]
     Active Substance: ZOPICLONE
     Dosage: 1 TABLE IF NECESSARY, 5 MG
     Dates: start: 20190625
  5. DOXAZOSIN [Concomitant]
     Active Substance: DOXAZOSIN MESYLATE
     Dosage: 4 MG
     Dates: start: 20181106
  6. TROMBYL 75 MG TABLETT [Concomitant]
     Active Substance: ASPIRIN
     Dosage: 75 MG
     Dates: start: 20170414
  7. LOSARTAN/HYDROCHLOROTIAZIDE [Concomitant]
     Dosage: STRENGTH 100MG / 25 MG, 1 DF
     Dates: start: 20180508
  8. MIRAPEXIN 0,18 MG TABLETT [Concomitant]
     Dosage: 1 TABLE IF NECESSARY, 0.18 MG
     Dates: start: 20170912
  9. ATORVASTATIN [Suspect]
     Active Substance: ATORVASTATIN
     Route: 048
     Dates: start: 2017
  10. OXASCAND 5 MG TABLETT [Concomitant]
     Active Substance: OXAZEPAM
     Dosage: 1 LOSS IF NEEDED, NO MORE THAN 3 LOSSES / DAY,   5 MG
     Dates: start: 20190515
  11. CARBOPLATIN. [Suspect]
     Active Substance: CARBOPLATIN
     Dosage: 675 MG, WHEN 1
     Route: 042
     Dates: start: 20190724, end: 20190724
  12. ALIMTA [Suspect]
     Active Substance: PEMETREXED DISODIUM
     Indication: LUNG ADENOCARCINOMA
     Dosage: WHEN 1,   1050 MG
     Route: 042
     Dates: start: 20190702, end: 20190702
  13. CARBOPLATIN. [Suspect]
     Active Substance: CARBOPLATIN
     Indication: LUNG ADENOCARCINOMA
     Dosage: WHEN 1,  675 MG
     Route: 042
     Dates: start: 20190702, end: 20190702
  14. EMOVAT 0,05 % KRAM [Concomitant]
     Dosage: ONCE DAILY IF NEEDED
     Dates: start: 20190521
  15. TRIOBE [Concomitant]
     Dates: start: 20190625
  16. LOCOID 0,1 % KR?M [Concomitant]
     Dosage: AS NEEDED ONCE DAILY
     Dates: start: 20190524
  17. DICLOFENAC [Concomitant]
     Active Substance: DICLOFENAC
     Dosage: 1 TABLET IF NEEDED, NO MORE THAN 3 / DAY,  50 MG
     Dates: start: 20180507

REACTIONS (2)
  - Polyneuropathy [Not Recovered/Not Resolved]
  - Myopathy [Not Recovered/Not Resolved]

NARRATIVE: CASE EVENT DATE: 20190702
